FAERS Safety Report 8522033-6 (Version None)
Quarter: 2012Q3

REPORT INFORMATION
  Report Type: 
  Country: None (occurrence: None)
  Receive Date: 20120719
  Receipt Date: 20120711
  Transmission Date: 20120928
  Serious: Yes (Other)
  Sender: FDA-Public Use
  Company Number: GB-JNJFOC-20120312986

PATIENT
  Sex: Female

DRUGS (6)
  1. METHOTREXATE [Concomitant]
  2. SIMPONI [Suspect]
     Indication: PRODUCT USED FOR UNKNOWN INDICATION
     Route: 058
  3. SIMPONI [Suspect]
     Route: 058
     Dates: start: 20120309
  4. FOLIC ACID [Concomitant]
  5. SIMPONI [Suspect]
     Route: 058
     Dates: start: 20120409
  6. RISEDRONATE SODIUM [Concomitant]

REACTIONS (5)
  - OROPHARYNGEAL PAIN [None]
  - INFECTION [None]
  - RENAL TUBULAR DISORDER [None]
  - COUGH [None]
  - HYPERKALAEMIA [None]
